FAERS Safety Report 8457655-4 (Version None)
Quarter: 2012Q2

REPORT INFORMATION
  Report Type: 
  Country: None (occurrence: None)
  Receive Date: 20120622
  Receipt Date: 20120618
  Transmission Date: 20120825
  Serious: No
  Sender: FDA-Public Use
  Company Number: US-PFIZER INC-2012124987

PATIENT
  Sex: Male

DRUGS (5)
  1. LYRICA [Suspect]
     Dosage: 300 MG, 3X/DAY (2 WEEKS)
     Route: 048
     Dates: start: 20120501, end: 20120523
  2. CYMBALTA [Concomitant]
     Dosage: UNK
  3. HYDROCODONE BITARTRATE + ACETAMINOPHEN [Concomitant]
     Dosage: UNK
  4. LYRICA [Suspect]
     Dosage: UNK, 1X/DAY
     Route: 048
     Dates: start: 20100101, end: 20120501
  5. ABILIFY [Concomitant]
     Dosage: UNK

REACTIONS (2)
  - OEDEMA PERIPHERAL [None]
  - JOINT SWELLING [None]
